FAERS Safety Report 9463656 (Version 3)
Quarter: 2013Q3

REPORT INFORMATION
  Report Type: Report from Study
  Country: BR (occurrence: BR)
  Receive Date: 20130819
  Receipt Date: 20130904
  Transmission Date: 20140515
  Serious: Yes (Hospitalization, Other)
  Sender: FDA-Public Use
  Company Number: PHHY2013BR028304

PATIENT
  Age: 43 Year
  Sex: Female
  Weight: 70 kg

DRUGS (12)
  1. FORASEQ [Suspect]
     Indication: ASTHMA
     Dosage: 2 DF DAILY
  2. FORASEQ [Suspect]
     Indication: BRONCHITIS CHRONIC
     Dosage: 1 DF, TID (1 CAPSULE OF EACH TREATMENT EVERY 8 HOURS)
  3. FORASEQ [Suspect]
     Dosage: 1 DF, TID (1 CAPSULE OF EACH TREATMENT EVERY 8 HOURS)
     Dates: start: 201303
  4. METICORTEN [Suspect]
     Indication: LUNG DISORDER
     Dosage: 20 MG, BID (EVERY TWELVE HOURS)
     Route: 048
  5. ATROVENT [Concomitant]
     Indication: BRONCHITIS
     Dosage: 20 DROPS DILUTED IN 5 ML OF SALINE SOLUTION
  6. ATROVENT [Concomitant]
     Indication: DYSPNOEA
  7. BEROTEC [Concomitant]
     Indication: DYSPNOEA
     Dosage: 10 DROPS DILUTED IN 5 ML OF SALINE SOLUTION
  8. BEROTEC [Concomitant]
     Dosage: 4 DROPS UNK
  9. ALENIA [Concomitant]
     Indication: BRONCHITIS
     Dosage: 1 DF, TID
  10. ALENIA [Concomitant]
     Dosage: 2 DF UNK
     Dates: start: 201303, end: 201303
  11. RIVOTRIL [Concomitant]
     Indication: NERVOUSNESS
     Dosage: 2 MG AT NIGHT
     Route: 048
  12. BENEFIX [Concomitant]
     Indication: BRONCHITIS
     Dosage: 300 MG, BID (EVERY 12 HOURS)
     Route: 048

REACTIONS (4)
  - Bronchitis [Not Recovered/Not Resolved]
  - Dysphonia [Not Recovered/Not Resolved]
  - Hypersensitivity [Recovered/Resolved]
  - Erythema [Recovered/Resolved]
